FAERS Safety Report 5919977-8 (Version None)
Quarter: 2008Q4

REPORT INFORMATION
  Report Type: 
  Country: None (occurrence: None)
  Receive Date: 20081014
  Receipt Date: 20080929
  Transmission Date: 20090506
  Serious: Yes (Hospitalization)
  Sender: FDA-Public Use
  Company Number: 2008SP002351

PATIENT
  Age: 68 Year
  Sex: Female

DRUGS (13)
  1. BROVANA [Suspect]
     Indication: EMPHYSEMA
     Dosage: 15 UG / 2ML; BID;INHALATION
     Dates: start: 20080331
  2. PREDNISONE TAB [Concomitant]
  3. DUONEB [Concomitant]
  4. LIPITOR [Concomitant]
  5. MIRAPEX [Concomitant]
  6. MUCINEX [Concomitant]
  7. SINGULAIR [Concomitant]
  8. SPIRIVA [Concomitant]
  9. ZYRTEC [Concomitant]
  10. CENTRUM SILVER [Concomitant]
  11. CALCIUM [Concomitant]
  12. VITAMIN D [Concomitant]
  13. MAGNESIUM SULFATE [Concomitant]

REACTIONS (5)
  - CHEST DISCOMFORT [None]
  - DRUG EFFECT DECREASED [None]
  - INTESTINAL OBSTRUCTION [None]
  - NERVOUSNESS [None]
  - TREMOR [None]
